FAERS Safety Report 4615062-6 (Version None)
Quarter: 2005Q1

REPORT INFORMATION
  Report Type: 
  Country: None (occurrence: None)
  Receive Date: 20050315
  Receipt Date: 20050307
  Transmission Date: 20050727
  Serious: Yes (Other)
  Sender: FDA-Public Use
  Company Number: 028-20785-04090595

PATIENT
  Age: 45 Year
  Sex: Female

DRUGS (3)
  1. THALOMID [Suspect]
     Indication: MULTIPLE MYELOMA
     Dosage: SEE IMAGE
     Route: 048
     Dates: start: 20041001, end: 20041101
  2. THALOMID [Suspect]
     Indication: MULTIPLE MYELOMA
     Dosage: SEE IMAGE
     Route: 048
     Dates: start: 20041101
  3. DECADRON [Concomitant]

REACTIONS (5)
  - BLOOD HUMAN CHORIONIC GONADOTROPIN INCREASED [None]
  - BLOOD HUMAN CHORIONIC GONADOTROPIN POSITIVE [None]
  - DEEP VEIN THROMBOSIS [None]
  - OEDEMA PERIPHERAL [None]
  - PAIN IN EXTREMITY [None]
